FAERS Safety Report 20263746 (Version 1)
Quarter: 2021Q4

REPORT INFORMATION
  Report Type: Report from Study
  Country: US (occurrence: US)
  Receive Date: 20211231
  Receipt Date: 20211231
  Transmission Date: 20220303
  Serious: Yes (Other)
  Sender: FDA-Public Use
  Company Number: US-NOVARTISPH-NVSC2021US298989

PATIENT
  Sex: Male

DRUGS (1)
  1. ENTRESTO [Suspect]
     Active Substance: SACUBITRIL\VALSARTAN
     Indication: Product used for unknown indication
     Dosage: UNK UNK, BID
     Route: 048

REACTIONS (8)
  - Amyloidosis [Unknown]
  - Cardiomyopathy [Unknown]
  - Biopsy heart [Unknown]
  - Mobility decreased [Unknown]
  - Spinal stenosis [Not Recovered/Not Resolved]
  - Arthropathy [Unknown]
  - Nerve injury [Unknown]
  - Product dose omission issue [Unknown]
